FAERS Safety Report 10414428 (Version 3)
Quarter: 2014Q3

REPORT INFORMATION
  Report Type: Spontaneous
  Country: JP (occurrence: JP)
  Receive Date: 20140828
  Receipt Date: 20140925
  Transmission Date: 20150326
  Serious: No
  Sender: FDA-Public Use
  Company Number: JP-ROCHE-1428589

PATIENT
  Age: 88 Year
  Sex: Female

DRUGS (3)
  1. HYPEN (JAPAN) [Concomitant]
     Indication: SPINAL OSTEOARTHRITIS
     Route: 048
     Dates: start: 20130925
  2. BONVIVA [Suspect]
     Active Substance: IBANDRONATE SODIUM
     Indication: OSTEOPOROSIS
     Route: 042
     Dates: start: 20131105, end: 20140621
  3. TEPRENONE [Concomitant]
     Active Substance: TEPRENONE
     Indication: SPINAL OSTEOARTHRITIS
     Route: 048
     Dates: start: 20130925

REACTIONS (1)
  - Hypocalcaemia [Recovering/Resolving]

NARRATIVE: CASE EVENT DATE: 20140621
